FAERS Safety Report 8120074-4 (Version None)
Quarter: 2012Q1

REPORT INFORMATION
  Report Type: 
  Country: None (occurrence: None)
  Receive Date: 20120207
  Receipt Date: 20120127
  Transmission Date: 20120608
  Serious: Yes (Hospitalization)
  Sender: FDA-Public Use
  Company Number: FR-PFIZER INC-2010080015

PATIENT
  Age: 81 Year
  Sex: Male

DRUGS (3)
  1. PRASUGREL [Suspect]
     Dosage: UNK
     Route: 048
     Dates: start: 20100401
  2. ATORVASTATIN [Suspect]
     Dosage: 40 MG, 1X/DAY
     Route: 048
     Dates: start: 20100401, end: 20100508
  3. RAMIPRIL [Suspect]
     Dosage: 2.5 MG, 1X/DAY
     Route: 048
     Dates: start: 20100428, end: 20100508

REACTIONS (3)
  - BLOOD CREATININE INCREASED [None]
  - RHABDOMYOLYSIS [None]
  - CYTOLYTIC HEPATITIS [None]
